FAERS Safety Report 5489702-6 (Version None)
Quarter: 2007Q4

REPORT INFORMATION
  Report Type: 
  Country: None (occurrence: None)
  Receive Date: 20071017
  Receipt Date: 20071017
  Transmission Date: 20080405
  Serious: Yes (Life-Threatening, Hospitalization)
  Sender: FDA-Public Use
  Company Number: None

PATIENT
  Age: 82 Year
  Sex: Female
  Weight: 71.2147 kg

DRUGS (9)
  1. CT 2103 50MG/M2 [Suspect]
     Indication: OESOPHAGEAL CARCINOMA
     Dosage: WEEKLY IV
     Route: 042
     Dates: start: 20070917
  2. CT 2103 50MG/M2 [Suspect]
     Indication: OESOPHAGEAL CARCINOMA
     Dosage: WEEKLY IV
     Route: 042
     Dates: start: 20070924
  3. CT 2103 50MG/M2 [Suspect]
     Indication: OESOPHAGEAL CARCINOMA
     Dosage: WEEKLY IV
     Route: 042
     Dates: start: 20071001
  4. CT 2103 50MG/M2 [Suspect]
     Indication: OESOPHAGEAL CARCINOMA
     Dosage: WEEKLY IV
     Route: 042
     Dates: start: 20071009
  5. CT 2103 50MG/M2 [Suspect]
     Indication: OESOPHAGEAL CARCINOMA
     Dosage: WEEKLY IV
     Route: 042
     Dates: start: 20071015
  6. CISPLATIN 25MG/M2 [Suspect]
     Dosage: WEEKLY IV
     Route: 042
     Dates: start: 20011001
  7. CISPLATIN 25MG/M2 [Suspect]
     Dosage: WEEKLY IV
     Route: 042
     Dates: start: 20070917
  8. CISPLATIN 25MG/M2 [Suspect]
     Dosage: WEEKLY IV
     Route: 042
     Dates: start: 20070924
  9. CISPLATIN 25MG/M2 [Suspect]
     Dosage: WEEKLY IV
     Route: 042
     Dates: start: 20071009

REACTIONS (5)
  - APHASIA [None]
  - CARDIO-RESPIRATORY ARREST [None]
  - GAZE PALSY [None]
  - UNRESPONSIVE TO STIMULI [None]
  - VOMITING [None]
